FAERS Safety Report 4336544-0 (Version None)
Quarter: 2004Q2

REPORT INFORMATION
  Report Type: 
  Country: None (occurrence: None)
  Receive Date: 20040407
  Receipt Date: 20040324
  Transmission Date: 20050107
  Serious: Yes (Hospitalization, Other)
  Sender: FDA-Public Use
  Company Number: USA-2002-0003100

PATIENT
  Age: 37 Year
  Sex: Female
  Weight: 74.8 kg

DRUGS (6)
  1. OXYCONTIN [Suspect]
     Indication: PAIN
     Dosage: 20 MG, TID, UNKNOWN; 40 MG, TID, ORAL; 10 MG, UNK, UNK
     Route: 048
     Dates: start: 19990501
  2. ZOLOFT [Concomitant]
  3. LORTAB [Concomitant]
  4. XANAX [Concomitant]
  5. PREMARIN [Concomitant]
  6. IBUPROFEN [Concomitant]

REACTIONS (49)
  - ABDOMINAL PAIN UPPER [None]
  - ABNORMAL BEHAVIOUR [None]
  - ALOPECIA [None]
  - ANOREXIA [None]
  - ANXIETY [None]
  - ASTHENIA [None]
  - BALANCE DISORDER [None]
  - CHEST PAIN [None]
  - CHILLS [None]
  - CONSTIPATION [None]
  - CRYING [None]
  - CYSTITIS [None]
  - DEPRESSION [None]
  - DIARRHOEA [None]
  - DIPLOPIA [None]
  - DISTURBANCE IN ATTENTION [None]
  - DIZZINESS [None]
  - DRUG DEPENDENCE [None]
  - DRUG TOLERANCE [None]
  - DRUG WITHDRAWAL SYNDROME [None]
  - EUPHORIC MOOD [None]
  - FATIGUE [None]
  - GALLBLADDER OPERATION [None]
  - HAIR PLUCKING [None]
  - HALLUCINATION, VISUAL [None]
  - HEADACHE [None]
  - HYPERHIDROSIS [None]
  - HYPOAESTHESIA [None]
  - HYSTERECTOMY [None]
  - INJURY [None]
  - IRRITABILITY [None]
  - LACERATION [None]
  - MALAISE [None]
  - MEMORY IMPAIRMENT [None]
  - MUSCLE CRAMP [None]
  - NAUSEA [None]
  - OBSESSIVE-COMPULSIVE DISORDER [None]
  - POSTOPERATIVE ADHESION [None]
  - RENAL PAIN [None]
  - RHINORRHOEA [None]
  - SALIVARY HYPERSECRETION [None]
  - SOMNOLENCE [None]
  - SPINAL FUSION ACQUIRED [None]
  - TACHYCARDIA [None]
  - TONGUE DISORDER [None]
  - TREMOR [None]
  - URINARY RETENTION [None]
  - WEIGHT DECREASED [None]
  - WOUND DEHISCENCE [None]
